FAERS Safety Report 6770181-3 (Version None)
Quarter: 2010Q2

REPORT INFORMATION
  Report Type: 
  Country: None (occurrence: None)
  Receive Date: 20100615
  Receipt Date: 20100608
  Transmission Date: 20101027
  Serious: Yes (Death)
  Sender: FDA-Public Use
  Company Number: JP-MERCK-1006USA01691

PATIENT
  Age: 74 Year
  Sex: Male

DRUGS (17)
  1. FOSAMAX [Suspect]
     Indication: PROPHYLAXIS
     Route: 048
     Dates: start: 20090716, end: 20090827
  2. FOSAMAX [Suspect]
     Route: 048
     Dates: start: 20090909, end: 20100218
  3. PIRFENIDONE [Suspect]
     Indication: IDIOPATHIC PULMONARY FIBROSIS
     Route: 048
     Dates: start: 20090507, end: 20090520
  4. PIRFENIDONE [Suspect]
     Route: 048
     Dates: start: 20090521, end: 20090624
  5. PIRFENIDONE [Suspect]
     Route: 048
     Dates: start: 20090625, end: 20090708
  6. PIRFENIDONE [Suspect]
     Route: 048
     Dates: start: 20090709, end: 20090827
  7. PIRFENIDONE [Suspect]
     Route: 048
     Dates: start: 20090909, end: 20100218
  8. COTRIM [Suspect]
     Indication: PROPHYLAXIS
     Route: 048
     Dates: start: 20090716, end: 20090827
  9. COTRIM [Suspect]
     Route: 048
     Dates: start: 20090909, end: 20100218
  10. CODEINE PHOSPHATE [Suspect]
     Indication: IDIOPATHIC PULMONARY FIBROSIS
     Route: 048
     Dates: start: 20090201, end: 20090827
  11. CODEINE PHOSPHATE [Suspect]
     Route: 048
     Dates: start: 20090901, end: 20100218
  12. KLARICID [Suspect]
     Indication: PROPHYLAXIS
     Route: 048
     Dates: start: 20090909, end: 20100218
  13. MAGLAX [Concomitant]
     Route: 048
  14. PURSENNID [Concomitant]
     Route: 048
  15. LOXONIN [Concomitant]
     Route: 048
  16. PEPCID [Concomitant]
     Route: 048
     Dates: start: 20090716
  17. CLARITH [Concomitant]
     Indication: RESPIRATORY TRACT INFECTION
     Route: 048
     Dates: start: 20090716, end: 20090827

REACTIONS (4)
  - DECREASED APPETITE [None]
  - DYSGEUSIA [None]
  - RESPIRATORY TRACT INFECTION [None]
  - WEIGHT DECREASED [None]
